FAERS Safety Report 9713954 (Version 1)
Quarter: 2013Q4

REPORT INFORMATION
  Report Type: Spontaneous
  Country: US (occurrence: US)
  Receive Date: 20131126
  Receipt Date: 20131126
  Transmission Date: 20140711
  Serious: No
  Sender: FDA-Public Use
  Company Number: US-GILEAD-2008-0018302

PATIENT
  Sex: Female
  Weight: 99.79 kg

DRUGS (13)
  1. LETAIRIS [Suspect]
     Indication: PULMONARY ARTERIAL HYPERTENSION
     Route: 048
     Dates: start: 20080804
  2. VYTORIN [Concomitant]
     Dosage: AS DIRECTED
     Route: 048
  3. ASPIRIN [Concomitant]
     Dosage: AS DIRECTED
     Route: 048
  4. BACTRIM DS [Concomitant]
     Route: 048
  5. PRILOSEC [Concomitant]
     Dosage: AS DIRECTED
     Route: 048
  6. PREDNISONE [Concomitant]
     Route: 048
  7. ACETYLCYSTEINE [Concomitant]
     Dosage: AS DIRECTED
     Route: 048
  8. AZATHIOPRINE [Concomitant]
     Dosage: AS DIRECTED
     Route: 048
  9. GLUCOPHAGE [Concomitant]
     Route: 048
  10. DARVOCET-N 100 [Concomitant]
     Dosage: AS DIRECTED
     Route: 048
  11. XANAX [Concomitant]
     Dosage: AS DIRECTED
     Route: 048
  12. LEXAPRO [Concomitant]
     Dosage: AS DIRECTED
     Route: 048
  13. FISH OIL [Concomitant]
     Dosage: AS DIRECTED
     Route: 048

REACTIONS (1)
  - Local swelling [None]
